FAERS Safety Report 6479529-0 (Version None)
Quarter: 2009Q4

REPORT INFORMATION
  Report Type: 
  Country: None (occurrence: None)
  Receive Date: 20091207
  Receipt Date: 20091207
  Transmission Date: 20100525
  Serious: Yes (Hospitalization, Disabling)
  Sender: FDA-Public Use
  Company Number: None

PATIENT
  Age: 26 Year
  Sex: Female
  Weight: 63.5036 kg

DRUGS (1)
  1. PAXIL [Suspect]
     Dosage: DAILY PO
     Route: 048
     Dates: start: 20090801, end: 20091125

REACTIONS (3)
  - ABDOMINAL DISCOMFORT [None]
  - CONVULSION [None]
  - SYNCOPE [None]
